FAERS Safety Report 14283736 (Version 1)
Quarter: 2017Q4

REPORT INFORMATION
  Report Type: Spontaneous
  Country: US (occurrence: US)
  Receive Date: 20171213
  Receipt Date: 20171213
  Transmission Date: 20180321
  Serious: No
  Sender: FDA-Public Use
  Company Number: US-BIOGEN-2017BI00494595

PATIENT

DRUGS (1)
  1. TECFIDERA [Suspect]
     Active Substance: DIMETHYL FUMARATE
     Indication: MULTIPLE SCLEROSIS
     Route: 065

REACTIONS (5)
  - Decreased immune responsiveness [Recovered/Resolved]
  - White blood cell count decreased [Recovered/Resolved]
  - Malaise [Recovered/Resolved]
  - Lymphocyte count decreased [Recovered/Resolved]
  - Streptococcal infection [Recovered/Resolved]
